FAERS Safety Report 7425743-7 (Version None)
Quarter: 2011Q2

REPORT INFORMATION
  Report Type: 
  Country: None (occurrence: None)
  Receive Date: 20110420
  Receipt Date: 20110411
  Transmission Date: 20111010
  Serious: Yes (Hospitalization, Other)
  Sender: FDA-Public Use
  Company Number: IT-BRISTOL-MYERS SQUIBB COMPANY-15669419

PATIENT
  Age: 76 Year
  Sex: Female

DRUGS (5)
  1. ARIMIDEX [Concomitant]
     Dosage: ARIMIDEX 1 UNIT
  2. OMEPRAZOLE [Concomitant]
     Dosage: OMEPRAZOL 1 UNIT
  3. COUMADIN [Suspect]
     Indication: PROPHYLAXIS
     Dosage: COUMADIN TABS 5 MG
     Route: 048
     Dates: start: 20101101, end: 20110316
  4. FLIXOTIDE [Concomitant]
     Dosage: FLIXOTIDE 1 UNIT
  5. TAVOR [Concomitant]

REACTIONS (4)
  - ISCHAEMIC STROKE [None]
  - PULMONARY EMBOLISM [None]
  - INTESTINAL HAEMORRHAGE [None]
  - IRON DEFICIENCY ANAEMIA [None]
